FAERS Safety Report 4749632-1 (Version None)
Quarter: 2005Q3

REPORT INFORMATION
  Report Type: 
  Country: None (occurrence: None)
  Receive Date: 20050822
  Receipt Date: 20050711
  Transmission Date: 20060218
  Serious: Yes (Hospitalization, Disabling)
  Sender: FDA-Public Use
  Company Number: US-MERCK-0507USA01529

PATIENT
  Age: 44 Year
  Sex: Male
  Weight: 82 kg

DRUGS (6)
  1. VIOXX [Suspect]
     Indication: BACK PAIN
     Route: 048
     Dates: start: 20030501
  2. VIOXX [Suspect]
     Route: 048
  3. VIOXX [Suspect]
     Indication: SWELLING
     Route: 048
     Dates: start: 20030501
  4. VIOXX [Suspect]
     Route: 048
  5. ADVIL [Concomitant]
     Route: 065
  6. ALUMINUM HYDROXIDE AND MAGNESIUM TRISILICATE [Concomitant]
     Route: 065

REACTIONS (7)
  - ARTHROPATHY [None]
  - GASTROINTESTINAL DISORDER [None]
  - HEPATIC ENZYME INCREASED [None]
  - LIMB OPERATION [None]
  - MUSCULOSKELETAL DISORDER [None]
  - MYOCARDIAL INFARCTION [None]
  - RENAL DISORDER [None]
